FAERS Safety Report 8037751-6 (Version None)
Quarter: 2012Q1

REPORT INFORMATION
  Report Type: 
  Country: None (occurrence: None)
  Receive Date: 20120111
  Receipt Date: 20120106
  Transmission Date: 20120608
  Serious: Yes (Hospitalization)
  Sender: FDA-Public Use
  Company Number: JP-ABBOTT-11P-087-0708633-00

PATIENT
  Sex: Male
  Weight: 58 kg

DRUGS (8)
  1. HUMIRA [Suspect]
     Indication: CROHN'S DISEASE
     Route: 058
     Dates: start: 20110309
  2. FERROUS CITRATE [Concomitant]
     Indication: ANAEMIA
     Route: 048
     Dates: start: 20091117
  3. ENTERAL NUTRITION [Concomitant]
     Indication: CROHN'S DISEASE
     Route: 048
  4. MESALAMINE [Concomitant]
     Indication: CROHN'S DISEASE
     Dosage: 3000 MG DAILY
  5. MECOBALAMIN [Concomitant]
     Indication: PERONEAL NERVE PALSY
     Dates: start: 20101227, end: 20110323
  6. CLOSTRIDIUM BUTYRICUM [Concomitant]
     Indication: PROPHYLAXIS AGAINST DIARRHOEA
     Route: 048
     Dates: start: 20090225
  7. HUMIRA [Suspect]
     Dates: start: 20110222, end: 20110222
  8. HUMIRA [Suspect]
     Dates: start: 20110208, end: 20110208

REACTIONS (3)
  - PYREXIA [None]
  - BODY TEMPERATURE INCREASED [None]
  - RASH [None]
